FAERS Safety Report 7721664-0 (Version None)
Quarter: 2011Q3

REPORT INFORMATION
  Report Type: 
  Country: None (occurrence: None)
  Receive Date: 20110831
  Receipt Date: 20110823
  Transmission Date: 20111222
  Serious: Yes (Other)
  Sender: FDA-Public Use
  Company Number: US-GLAXOSMITHKLINE-A0939914A

PATIENT
  Age: 75 Year
  Sex: Female

DRUGS (5)
  1. VITAMIN TAB [Concomitant]
  2. ASPIRIN [Concomitant]
  3. LIPITOR [Concomitant]
  4. ADVAIR DISKUS 100/50 [Suspect]
     Indication: CHRONIC OBSTRUCTIVE PULMONARY DISEASE
     Dosage: 1PUFF TWICE PER DAY
     Route: 055
     Dates: start: 20110531
  5. BLOOD PRESSURE MEDICATION [Concomitant]

REACTIONS (10)
  - FEELING JITTERY [None]
  - CERUMEN IMPACTION [None]
  - COUGH [None]
  - DYSGEUSIA [None]
  - DEAFNESS UNILATERAL [None]
  - EAR DISCOMFORT [None]
  - LYMPH NODE PAIN [None]
  - DYSPHONIA [None]
  - SINUSITIS [None]
  - LYMPHADENOPATHY [None]
